FAERS Safety Report 7657737 (Version 3)
Quarter: 2013Q1

REPORT INFORMATION
  Report Type: Report from Study
  Country: JP (occurrence: JP)
  Receive Date: 20101105
  Receipt Date: 20130129
  Transmission Date: 20140127
  Serious: Yes (Death, Hospitalization)
  Sender: FDA-Public Use
  Company Number: PHHY2010JP65983

PATIENT
  Age: 47 None
  Sex: Male
  Weight: 49 kg

DRUGS (7)
  1. AFINITOR [Suspect]
     Indication: METASTATIC RENAL CELL CARCINOMA
     Dosage: 10 MG, UNK
     Route: 048
     Dates: start: 20100816, end: 20101122
  2. CODEINE PHOSPHATE [Concomitant]
     Indication: RENAL CELL CARCINOMA
     Dosage: 6 G, UNK
     Route: 048
     Dates: start: 20100824, end: 20101122
  3. MALFA [Concomitant]
     Dosage: 30 ML, UNK
     Route: 048
     Dates: start: 20100824
  4. KENALOG [Concomitant]
     Indication: PROPHYLAXIS
     Dosage: UNK
     Dates: start: 20100825, end: 20101122
  5. TAKEPRON [Concomitant]
     Indication: RENAL CELL CARCINOMA
     Dosage: 30 MG, UNK
     Route: 048
     Dates: start: 20100816
  6. LOXONIN [Concomitant]
     Indication: RENAL CELL CARCINOMA
     Dosage: 180 MG, UNK
     Route: 048
  7. ZOMETA [Concomitant]
     Indication: METASTATIC RENAL CELL CARCINOMA
     Dosage: UNK
     Dates: start: 20090403, end: 20101101

REACTIONS (6)
  - Malignant neoplasm progression [Fatal]
  - Melaena [Fatal]
  - Anaemia [Recovering/Resolving]
  - Haemorrhagic diathesis [Recovering/Resolving]
  - Haematochezia [Not Recovered/Not Resolved]
  - Haematuria [Recovering/Resolving]
